FAERS Safety Report 25017411 (Version 1)
Quarter: 2025Q1

REPORT INFORMATION
  Report Type: Spontaneous
  Country: US (occurrence: US)
  Receive Date: 20250227
  Receipt Date: 20250227
  Transmission Date: 20250409
  Serious: No
  Sender: Haleon PLC
  Company Number: US-HALEON-2230139

PATIENT
  Age: 32 Year
  Sex: Female

DRUGS (2)
  1. THERAFLU SEVERE COLD RELIEF DAYTIME HONEY LEMON FLAVOR [Suspect]
     Active Substance: ACETAMINOPHEN\DEXTROMETHORPHAN HYDROBROMIDE
     Indication: Nasopharyngitis
     Dosage: ONCE IN THE DAYTIME
     Dates: start: 20250219, end: 20250224
  2. ACETAMINOPHEN AND DIPHENHYDRAMINE HYDROCHLORIDE (ACETAMINOPHEN\DIPHENH [Suspect]
     Active Substance: ACETAMINOPHEN\DIPHENHYDRAMINE HYDROCHLORIDE
     Indication: Nasopharyngitis
     Dosage: ONCE AT NIGHTIME
     Dates: start: 20250219, end: 20250224

REACTIONS (2)
  - Drug ineffective [Unknown]
  - Inappropriate schedule of product administration [Unknown]
